FAERS Safety Report 9403154 (Version 2)
Quarter: 2013Q3

REPORT INFORMATION
  Report Type: Report from Study
  Country: UG (occurrence: UG)
  Receive Date: 20130716
  Receipt Date: 20130718
  Transmission Date: 20140515
  Serious: Yes (Death, Hospitalization)
  Sender: FDA-Public Use
  Company Number: UG-VIIV HEALTHCARE LIMITED-B0907508A

PATIENT
  Age: 66 Year
  Sex: Male

DRUGS (10)
  1. ZIDOVUDINE [Suspect]
     Indication: HIV INFECTION
     Dosage: 300MG TWICE PER DAY
     Route: 048
     Dates: start: 20130618, end: 20130702
  2. LAMIVUDINE-HIV [Suspect]
     Indication: HIV INFECTION
     Dosage: 150MG TWICE PER DAY
     Route: 048
     Dates: start: 20130618, end: 20130704
  3. EFAVIRENZ [Suspect]
     Indication: HIV INFECTION
     Dosage: 600MG PER DAY
     Route: 048
     Dates: start: 20130618, end: 20130704
  4. FLUCONAZOLE [Suspect]
     Indication: HIV INFECTION
     Dosage: 100MG PER DAY
     Route: 048
     Dates: start: 20130618, end: 20130702
  5. RALTEGRAVIR [Suspect]
     Indication: HIV INFECTION
     Dosage: 400MG TWICE PER DAY
     Route: 048
     Dates: start: 20130618, end: 20130704
  6. ISONIAZID [Suspect]
     Indication: HIV INFECTION
     Dosage: 300MG PER DAY
     Route: 048
     Dates: start: 20130618, end: 20130702
  7. ALBENDAZOLE [Suspect]
     Indication: HIV INFECTION
     Dosage: 400MG PER DAY
     Route: 048
     Dates: start: 20130618, end: 20130618
  8. AZITHROMYCIN [Suspect]
     Indication: HIV INFECTION
     Dosage: 500MG PER DAY
     Route: 048
     Dates: start: 20130618, end: 20130623
  9. FOOD [Suspect]
     Indication: HIV INFECTION
     Dosage: 92MG TWICE PER DAY
     Route: 048
     Dates: start: 20130618, end: 20130702
  10. COTRIMOXAZOLE [Suspect]
     Indication: HIV INFECTION
     Dosage: 800MG PER DAY
     Route: 048
     Dates: start: 20130618, end: 20130704

REACTIONS (2)
  - Oropharyngeal candidiasis [Fatal]
  - Anaemia [Not Recovered/Not Resolved]
